FAERS Safety Report 23207277 (Version 2)
Quarter: 2024Q1

REPORT INFORMATION
  Report Type: Spontaneous
  Country: JP (occurrence: JP)
  Receive Date: 20231120
  Receipt Date: 20240202
  Transmission Date: 20240409
  Serious: Yes (Death, Hospitalization, Other)
  Sender: FDA-Public Use
  Company Number: JP-009507513-2309JPN005662

PATIENT
  Age: 62 Year
  Sex: Male

DRUGS (3)
  1. KEYTRUDA [Suspect]
     Active Substance: PEMBROLIZUMAB
     Indication: Lung adenocarcinoma
     Dosage: 200 MG, FOUR-WEEK INTERVALS
     Route: 041
     Dates: start: 20200327
  2. PEMETREXED [Concomitant]
     Active Substance: PEMETREXED
     Indication: Lung adenocarcinoma
     Dosage: 930 MG, FOUR-WEEK INTERVALS
     Route: 041
  3. CARBOPLATIN [Concomitant]
     Active Substance: CARBOPLATIN
     Indication: Lung adenocarcinoma
     Dosage: 700 MG, FOUR-WEEK INTERVALS
     Route: 041

REACTIONS (4)
  - Colitis ulcerative [Recovering/Resolving]
  - Malignant neoplasm progression [Fatal]
  - Malignant ascites [Unknown]
  - Inappropriate schedule of product administration [Unknown]

NARRATIVE: CASE EVENT DATE: 20200327
